FAERS Safety Report 4332489-0 (Version None)
Quarter: 2004Q2

REPORT INFORMATION
  Report Type: 
  Country: None (occurrence: None)
  Receive Date: 20040401
  Receipt Date: 20040317
  Transmission Date: 20050107
  Serious: Yes (Death, Hospitalization)
  Sender: FDA-Public Use
  Company Number: APCDSS2001001428

PATIENT
  Age: 82 Year
  Sex: Female
  Weight: 41 kg

DRUGS (10)
  1. GALANTAMINE (GALANTAMINE) TABLETS [Suspect]
     Indication: DEMENTIA ALZHEIMER'S TYPE
     Dosage: 8 MG, IN 1 DAY, ORAL;16 MG, IN 1 DAY, ORAL
     Route: 048
     Dates: start: 20010928, end: 20011023
  2. GALANTAMINE (GALANTAMINE) TABLETS [Suspect]
     Indication: DEMENTIA ALZHEIMER'S TYPE
     Dosage: 8 MG, IN 1 DAY, ORAL;16 MG, IN 1 DAY, ORAL
     Route: 048
     Dates: start: 20011024, end: 20011115
  3. FAMOTIDINE (FAMOTIDINE) TABLETS [Suspect]
     Indication: PROPHYLAXIS
     Dosage: 20 MG, IN 1 DAY, ORAL
     Route: 048
     Dates: start: 20010831, end: 20011115
  4. VALPROATE SODIUM (VALPROATE SODIUM) TABLETS [Concomitant]
     Indication: DEMENTIA
     Dosage: 100 MG, IN 1 DAY, ORAL
     Route: 048
     Dates: start: 20010817, end: 20011115
  5. FLUVASTATIN SODIUM (FLUVASTATIN SODIUM) TABLETS [Concomitant]
  6. TRAZODONE HYDROCHLORIDE (TRAZODONE HYDROCHLORIDE) TABLETS [Concomitant]
  7. NITROGLYCERIN (GLYCERYL TRINITRATE) UNSPECIFIED [Concomitant]
  8. MOSAPRIDE CITRATE (MOSAPRIDE CITRATE) TABLETS [Concomitant]
  9. LEVODOPA-CARBIDOPA (SINEMET) TABLETS [Concomitant]
  10. FUROSEMDE (FUROSEMIDE) TABLETS [Concomitant]

REACTIONS (13)
  - ANOREXIA [None]
  - ASPARTATE AMINOTRANSFERASE INCREASED [None]
  - BLOOD CREATINE PHOSPHOKINASE INCREASED [None]
  - BLOOD LACTATE DEHYDROGENASE INCREASED [None]
  - BLOOD POTASSIUM DECREASED [None]
  - CARDIO-RESPIRATORY ARREST [None]
  - DEHYDRATION [None]
  - HEMIPLEGIA [None]
  - NAUSEA [None]
  - PARKINSONISM [None]
  - RENAL FAILURE ACUTE [None]
  - RESPIRATION ABNORMAL [None]
  - SLEEP DISORDER [None]
